APPROVED DRUG PRODUCT: AMANTADINE HYDROCHLORIDE
Active Ingredient: AMANTADINE HYDROCHLORIDE
Strength: 100MG
Dosage Form/Route: CAPSULE;ORAL
Application: A214580 | Product #001 | TE Code: AB
Applicant: HUMANWELL PURACAP PHARMACEUTICAL WUHAN CO LTD
Approved: Dec 20, 2022 | RLD: No | RS: No | Type: RX